FAERS Safety Report 8574097-1 (Version None)
Quarter: 2012Q3

REPORT INFORMATION
  Report Type: 
  Country: None (occurrence: None)
  Receive Date: 20120806
  Receipt Date: 20120801
  Transmission Date: 20120928
  Serious: Yes (Hospitalization, Other)
  Sender: FDA-Public Use
  Company Number: PHEH2009US10610

PATIENT
  Sex: Female

DRUGS (3)
  1. ASPIRIN [Concomitant]
     Dosage: UNK UKN, UNK
  2. LIPITOR [Concomitant]
     Dosage: 20 MG, UNK
  3. METOPROLOL TARTRATE [Suspect]
     Dosage: 100 MG, UNK

REACTIONS (3)
  - CARDIAC FLUTTER [None]
  - HEART RATE INCREASED [None]
  - PALPITATIONS [None]
